FAERS Safety Report 7014709-7 (Version None)
Quarter: 2010Q3

REPORT INFORMATION
  Report Type: 
  Country: None (occurrence: None)
  Receive Date: 20100927
  Receipt Date: 20100914
  Transmission Date: 20110219
  Serious: Yes (Hospitalization)
  Sender: FDA-Public Use
  Company Number: PHHY2010PT60874

PATIENT
  Sex: Male

DRUGS (6)
  1. DIOVAN HCT [Suspect]
  2. FOLIC ACID [Suspect]
  3. DISULFIRAM [Suspect]
  4. ALLOPURINOL [Suspect]
  5. TIAPRIDE [Suspect]
  6. ETORICOXIB [Suspect]

REACTIONS (3)
  - BONE PAIN [None]
  - PRURITUS [None]
  - RASH PUSTULAR [None]
